FAERS Safety Report 6256899-X (Version None)
Quarter: 2009Q3

REPORT INFORMATION
  Report Type: 
  Country: None (occurrence: None)
  Receive Date: 20090706
  Receipt Date: 20090629
  Transmission Date: 20100115
  Serious: No
  Sender: FDA-Public Use
  Company Number: US-JNJFOC-20090700254

PATIENT
  Sex: Female
  Weight: 83.92 kg

DRUGS (2)
  1. DURAGESIC-100 [Suspect]
     Indication: ARTHRITIS
     Route: 062
  2. UNKNOWN MEDICATION [Concomitant]

REACTIONS (6)
  - DIARRHOEA [None]
  - DRUG ADMINISTERED AT INAPPROPRIATE SITE [None]
  - FATIGUE [None]
  - HEADACHE [None]
  - INFLUENZA [None]
  - NAUSEA [None]
